FAERS Safety Report 8054436-0 (Version None)
Quarter: 2012Q1

REPORT INFORMATION
  Report Type: 
  Country: None (occurrence: None)
  Receive Date: 20120118
  Receipt Date: 20120112
  Transmission Date: 20120608
  Serious: Yes (Other)
  Sender: FDA-Public Use
  Company Number: US-ASTRAZENECA-2012SE02658

PATIENT
  Sex: Female

DRUGS (14)
  1. JANUVIA [Concomitant]
  2. REGAN [Concomitant]
  3. BRILINTA [Suspect]
     Indication: ACUTE CORONARY SYNDROME
     Route: 048
  4. METOPROLOL [Concomitant]
  5. LIPITOR [Concomitant]
  6. BYATTA [Concomitant]
  7. LANTUS [Concomitant]
  8. LISINOPRIL [Concomitant]
  9. OMEPRAZOLE [Concomitant]
  10. ASPIRIN [Concomitant]
  11. FLUNACE [Concomitant]
  12. GLYBURIDE [Concomitant]
  13. METFORMIN HCL [Concomitant]
  14. SINGULAIR [Concomitant]

REACTIONS (3)
  - HAEMOPTYSIS [None]
  - MENORRHAGIA [None]
  - EPISTAXIS [None]
